FAERS Safety Report 5843862-3 (Version None)
Quarter: 2008Q3

REPORT INFORMATION
  Report Type: 
  Country: None (occurrence: None)
  Receive Date: 20080813
  Receipt Date: 20080807
  Transmission Date: 20090109
  Serious: Yes (Other)
  Sender: FDA-Public Use
  Company Number: PHHY2008JP17500

PATIENT
  Age: 78 Year
  Sex: Male

DRUGS (5)
  1. DIOVAN [Suspect]
     Indication: HYPERTENSION
     Dosage: UNK
     Route: 048
  2. NU-LOTAN [Concomitant]
  3. BAYMYCARD [Concomitant]
  4. PRIMPERAN TAB [Concomitant]
  5. MAGNESIUM OXIDE [Concomitant]

REACTIONS (2)
  - HAEMORRHAGE [None]
  - SURGERY [None]
